FAERS Safety Report 23102060 (Version 1)
Quarter: 2023Q4

REPORT INFORMATION
  Report Type: Spontaneous
  Country: US (occurrence: US)
  Receive Date: 20231025
  Receipt Date: 20231025
  Transmission Date: 20240109
  Serious: No
  Sender: FDA-Public Use
  Company Number: US-BIOCON-BCN-2023-000176

PATIENT
  Age: 64 Year
  Sex: Female
  Weight: 69.008 kg

DRUGS (3)
  1. ROSUVASTATIN CALCIUM [Suspect]
     Active Substance: ROSUVASTATIN CALCIUM
     Indication: Blood cholesterol increased
     Dates: start: 20221212
  2. NP-Thyroid [Concomitant]
     Indication: Thyroid disorder
     Dosage: TAKING FROM THE PAST 02 YEARS
  3. BENAZEPRIL [Concomitant]
     Active Substance: BENAZEPRIL HYDROCHLORIDE
     Indication: Hypertension
     Dosage: USING IT FOR ABOUT 10 YEARS

REACTIONS (1)
  - Pruritus [Not Recovered/Not Resolved]
